FAERS Safety Report 9826074 (Version 1)
Quarter: 2014Q1

REPORT INFORMATION
  Report Type: Spontaneous
  Country: US (occurrence: US)
  Receive Date: 20140117
  Receipt Date: 20140117
  Transmission Date: 20141002
  Serious: No
  Sender: FDA-Public Use
  Company Number: US-TEVA-445988USA

PATIENT
  Sex: Male

DRUGS (16)
  1. SYNRIBO [Suspect]
     Indication: CHRONIC MYELOID LEUKAEMIA
  2. MAXIDEX [Concomitant]
     Dosage: 75/50 MG
  3. MS CONTIN [Concomitant]
  4. PROCARDIA XL [Concomitant]
  5. POTASSIUM [Concomitant]
  6. COREG [Concomitant]
  7. ZANAFLEX [Concomitant]
  8. PROMETHAZINE [Concomitant]
  9. ZOFRAN [Concomitant]
  10. PAXIL [Concomitant]
  11. ALPRAZOLAM [Concomitant]
  12. SOMA [Concomitant]
  13. PERCOCET [Concomitant]
     Dosage: 10-325 MG
  14. PROVIGIL [Concomitant]
  15. IMITREX [Concomitant]
  16. TOPAMAX [Concomitant]

REACTIONS (1)
  - Somnolence [Unknown]
